FAERS Safety Report 5619759-0 (Version None)
Quarter: 2008Q1

REPORT INFORMATION
  Report Type: 
  Country: None (occurrence: None)
  Receive Date: 20080208
  Receipt Date: 20080116
  Transmission Date: 20080703
  Serious: No
  Sender: FDA-Public Use
  Company Number: A0699786A

PATIENT
  Age: 41 Year
  Sex: Female

DRUGS (7)
  1. ALTABAX [Suspect]
     Indication: INFECTION
     Dosage: 1APP UNKNOWN
     Route: 061
     Dates: start: 20071218
  2. CEPHALEXIN [Concomitant]
  3. CIPROFLOXACIN [Concomitant]
  4. UNKNOWN MEDICATION [Concomitant]
  5. TENORMIN [Concomitant]
  6. LISINOPRIL [Concomitant]
  7. HYDROCHLOROTHIAZIDE [Concomitant]

REACTIONS (2)
  - APPLICATION SITE IRRITATION [None]
  - APPLICATION SITE PAIN [None]
